FAERS Safety Report 4627351-X (Version None)
Quarter: 2005Q2

REPORT INFORMATION
  Report Type: 
  Country: None (occurrence: None)
  Receive Date: 20050405
  Receipt Date: 20050215
  Transmission Date: 20051028
  Serious: Yes (Death)
  Sender: FDA-Public Use
  Company Number: 2005S1000572

PATIENT
  Age: 67 Year
  Sex: Male
  Weight: 72.5755 kg

DRUGS (25)
  1. CLOZAPINE [Suspect]
     Indication: DEMENTIA
     Dosage: 50 MG, QAM ; PO,
     Route: 048
     Dates: start: 20041203
  2. CLOZAPINE [Suspect]
     Indication: SCHIZOPHRENIA, UNDIFFERENTIATED TYPE
     Dosage: 50 MG, QAM ; PO,
     Route: 048
     Dates: start: 20041203
  3. CLOZAPINE [Suspect]
     Indication: DEMENTIA
     Dosage: SE IMAGE
     Dates: start: 20041203
  4. CLOZAPINE [Suspect]
     Indication: SCHIZOPHRENIA, UNDIFFERENTIATED TYPE
     Dosage: SE IMAGE
     Dates: start: 20041203
  5. CLOZAPINE [Suspect]
     Indication: DEMENTIA
     Dosage: SE IMAGE
     Dates: start: 20041203
  6. CLOZAPINE [Suspect]
     Indication: SCHIZOPHRENIA, UNDIFFERENTIATED TYPE
     Dosage: SE IMAGE
     Dates: start: 20041203
  7. SENNA FRUIT [Concomitant]
  8. ZOLPIDEM TARTRATE [Concomitant]
  9. TRIAMCINOLONE ACETONIDE [Concomitant]
  10. CETIRIZINE HCL [Concomitant]
  11. HYDROCHLORIDE [Concomitant]
  12. DIPHENHYDRAMINE HCL [Concomitant]
  13. HYDROCORTISONE [Concomitant]
  14. FUROSEMIDE [Concomitant]
  15. PERPHENAZINE [Concomitant]
  16. CLARK'S SOLUTION [Concomitant]
  17. MAGNESIUM HYDROXIDE/ALUMINIUM HYDROXIDE GEL [Concomitant]
  18. TERBINAFINE HCL [Concomitant]
  19. PANTOPRAZOLE SODIUM [Concomitant]
  20. GATIFLOXACIN [Concomitant]
  21. PARACETAMOL [Concomitant]
  22. TRAZODONE HCL [Concomitant]
  23. TAMSULOSIN HCL [Concomitant]
  24. DICLOFENAC SODIUM [Concomitant]
  25. BACLOFEN [Concomitant]

REACTIONS (3)
  - AGRANULOCYTOSIS [None]
  - JAUNDICE CHOLESTATIC [None]
  - SEPTIC NECROSIS [None]
